FAERS Safety Report 8442793-2 (Version None)
Quarter: 2012Q2

REPORT INFORMATION
  Report Type: 
  Country: None (occurrence: None)
  Receive Date: 20120615
  Receipt Date: 20120612
  Transmission Date: 20120825
  Serious: Yes (Hospitalization)
  Sender: FDA-Public Use
  Company Number: JP-EISAI INC-E2090-02168-SPO-JP

PATIENT
  Age: 29 Year
  Sex: Female

DRUGS (1)
  1. ZONISAMIDE [Suspect]
     Indication: CONVULSION PROPHYLAXIS
     Dosage: 200 MG
     Route: 048

REACTIONS (1)
  - STEVENS-JOHNSON SYNDROME [None]
